FAERS Safety Report 22247566 (Version 1)
Quarter: 2023Q2

REPORT INFORMATION
  Report Type: Spontaneous
  Country: CA (occurrence: CA)
  Receive Date: 20230425
  Receipt Date: 20230425
  Transmission Date: 20230721
  Serious: Yes (Other)
  Sender: FDA-Public Use
  Company Number: CA-AUROBINDO-AUR-APL-2022-035236

PATIENT
  Age: 12 Year
  Sex: Female

DRUGS (6)
  1. LAMOTRIGINE [Suspect]
     Active Substance: LAMOTRIGINE
     Indication: Epilepsy
     Dosage: UNKNOWN
     Route: 065
  2. CARBAMAZEPINE [Suspect]
     Active Substance: CARBAMAZEPINE
     Indication: Epilepsy
     Dosage: UNK
     Route: 065
  3. CLOBAZAM [Suspect]
     Active Substance: CLOBAZAM
     Indication: Epilepsy
     Dosage: UNK
     Route: 065
  4. NABIXIMOLS [Concomitant]
     Active Substance: NABIXIMOLS
     Indication: Epilepsy
     Dosage: 20 MILLIGRAM/KILOGRAM, ONCE A DAY
     Route: 048
  5. NABIXIMOLS [Concomitant]
     Active Substance: NABIXIMOLS
     Dosage: 12.5 MILLIGRAM/KILOGRAM, ONCE A DAY
     Route: 048
  6. NABIXIMOLS [Concomitant]
     Active Substance: NABIXIMOLS
     Dosage: 8.64 MILLIGRAM/KILOGRAM, ONCE A DAY
     Route: 048

REACTIONS (1)
  - Drug ineffective [Unknown]
